FAERS Safety Report 5416679-1 (Version None)
Quarter: 2007Q3

REPORT INFORMATION
  Report Type: 
  Country: None (occurrence: None)
  Receive Date: 20070814
  Receipt Date: 20070801
  Transmission Date: 20080115
  Serious: Yes (Hospitalization)
  Sender: FDA-Public Use
  Company Number: TPG2007A00527

PATIENT
  Sex: Female

DRUGS (6)
  1. COMPETACT                           (PIOGLITAZONE HYDROCHLORIDE, METFO [Suspect]
     Indication: DRUG USE FOR UNKNOWN INDICATION
     Dosage: PIOGLITAZONE/METFORMIN; PER ORAL
     Route: 048
  2. GLYBURIDE [Concomitant]
  3. AMLOBETA                    (AMLODIPINE) [Concomitant]
  4. SIMVAHEXAL                 (SIMVASTATIN) [Concomitant]
  5. METOHEXAL                    (METOPROLOL TARTRATE) [Concomitant]
  6. ALLOPURINOL [Concomitant]

REACTIONS (2)
  - ACUTE PULMONARY OEDEMA [None]
  - CARDIAC FAILURE [None]
